FAERS Safety Report 4927696-X (Version None)
Quarter: 2006Q1

REPORT INFORMATION
  Report Type: 
  Country: None (occurrence: None)
  Receive Date: 20060228
  Receipt Date: 20060119
  Transmission Date: 20060701
  Serious: Yes (Death, Other)
  Sender: FDA-Public Use
  Company Number: BR-MERCK-0601BRA00046

PATIENT
  Age: 46 Year
  Sex: Female

DRUGS (16)
  1. CANCIDAS [Suspect]
     Indication: PNEUMONIA FUNGAL
     Route: 051
     Dates: start: 20051214, end: 20051220
  2. AMPHOTERICIN B [Concomitant]
     Indication: PNEUMONIA FUNGAL
     Route: 065
     Dates: start: 20051125, end: 20051220
  3. IMIPENEM [Concomitant]
     Indication: FEBRILE NEUTROPENIA
     Route: 065
     Dates: start: 20051205, end: 20051220
  4. SULFAMERAZINE AND TRIMETHOPRIM [Concomitant]
     Indication: PROPHYLAXIS
     Route: 065
     Dates: start: 20051205, end: 20051220
  5. VANCOMYCIN [Concomitant]
     Indication: FEBRILE NEUTROPENIA
     Route: 065
     Dates: start: 20051207, end: 20051214
  6. DIPYRONE [Concomitant]
     Route: 065
  7. RANITIDINE [Concomitant]
     Route: 065
  8. NYSTATIN [Concomitant]
     Route: 065
  9. ALLOPURINOL [Concomitant]
     Route: 065
  10. BROMOPRIDE [Concomitant]
     Route: 065
  11. CLONAZEPAM [Concomitant]
     Route: 065
  12. TRAMADOL HYDROCHLORIDE [Concomitant]
     Route: 065
  13. ALPRAZOLAM [Concomitant]
     Route: 065
  14. MIDAZOLAM [Concomitant]
     Route: 065
  15. FENTANYL [Concomitant]
     Route: 065
  16. AMINO ACIDS (UNSPECIFIED) AND CARBOHYDRATES (UNSPECIFIED) AND ELECTROL [Concomitant]
     Route: 065

REACTIONS (3)
  - ACUTE MYOCARDIAL INFARCTION [None]
  - CEREBROVASCULAR ACCIDENT [None]
  - SEPSIS [None]
